FAERS Safety Report 4758109-9 (Version None)
Quarter: 2005Q3

REPORT INFORMATION
  Report Type: 
  Country: None (occurrence: None)
  Receive Date: 20050829
  Receipt Date: 20050715
  Transmission Date: 20060218
  Serious: Yes (Death)
  Sender: FDA-Public Use
  Company Number: 2005102474

PATIENT
  Age: 71 Year
  Sex: Male

DRUGS (3)
  1. LIPITOR [Suspect]
     Indication: DYSLIPIDAEMIA
     Dosage: 10 MG (10 MG, 1 IN 1 D), ORAL
     Route: 048
     Dates: start: 20010801, end: 20050629
  2. NORVASC [Concomitant]
  3. CALCIUM CARBONATE (CALCIUM CARBONATE) [Concomitant]

REACTIONS (4)
  - CARDIAC ARREST [None]
  - INFARCTION [None]
  - RENAL DISORDER [None]
  - RESPIRATORY FAILURE [None]
